FAERS Safety Report 12213948 (Version 1)
Quarter: 2016Q1

REPORT INFORMATION
  Report Type: Spontaneous
  Country: CH (occurrence: CH)
  Receive Date: 20160328
  Receipt Date: 20160328
  Transmission Date: 20160526
  Serious: Yes (Hospitalization)
  Sender: FDA-Public Use
  Company Number: CH-ACTAVIS-2016-06251

PATIENT
  Age: 50 Year
  Sex: Female

DRUGS (3)
  1. ANTABUSE [Suspect]
     Active Substance: DISULFIRAM
     Indication: ALCOHOL DETOXIFICATION
     Dosage: 400 MG, 3/WEEK
     Route: 048
     Dates: start: 201507, end: 20160227
  2. EUTHYROX [Concomitant]
     Active Substance: LEVOTHYROXINE SODIUM
     Indication: HYPOTHYROIDISM
     Dosage: 100 ?G, DAILY
     Route: 048
  3. VENLAFAXIN SANDOZ [Concomitant]
     Indication: DEPRESSION
     Dosage: 75 MG, BID
     Route: 048

REACTIONS (1)
  - Epilepsy [Recovered/Resolved]

NARRATIVE: CASE EVENT DATE: 20160227
